FAERS Safety Report 16681871 (Version 1)
Quarter: 2019Q3

REPORT INFORMATION
  Report Type: Report from Study
  Country: ES (occurrence: ES)
  Receive Date: 20190808
  Receipt Date: 20190808
  Transmission Date: 20191004
  Serious: Yes (Hospitalization)
  Sender: FDA-Public Use
  Company Number: ES-ACCORD-150695

PATIENT
  Age: 85 Year
  Sex: Female

DRUGS (6)
  1. AMLODIPINE [Suspect]
     Active Substance: AMLODIPINE BESYLATE
     Indication: HYPERTENSION
     Dosage: (STRENGTH-5 MG, 30 TABLETS),0-1-0
     Route: 048
     Dates: start: 201812, end: 20190327
  2. ACFOL [Concomitant]
     Active Substance: FOLIC ACID
     Dosage: (5 MG, 28 TABLETS)
     Route: 048
  3. HYDROCHLOROTHIAZIDE/LOSARTAN POTASSIUM [Interacting]
     Active Substance: HYDROCHLOROTHIAZIDE\LOSARTAN POTASSIUM
     Indication: HYPERTENSION
     Dosage: 1-0-0 (50 MG / 12.5 MG) TOTAL-28 TABLETS
     Route: 048
     Dates: start: 201808, end: 20190326
  4. ALDOCUMAR [Concomitant]
     Active Substance: WARFARIN SODIUM
     Dosage: 3 MG, 40 TABLETS
     Route: 048
  5. CLEXANE [Concomitant]
     Active Substance: ENOXAPARIN SODIUM
     Dosage: 6,000 IU (60 MG) / 0.6 ML
     Route: 058
  6. CARBAMAZEPINE. [Interacting]
     Active Substance: CARBAMAZEPINE
     Indication: FOCAL DYSCOGNITIVE SEIZURES
     Dosage: 1-1-2 (STRENGTH-200 MG 100 TABLETS)
     Route: 048
     Dates: start: 2000

REACTIONS (4)
  - Syncope [Recovered/Resolved]
  - Hyponatraemia [Recovered/Resolved]
  - Drug interaction [Unknown]
  - Hypotension [Recovered/Resolved]

NARRATIVE: CASE EVENT DATE: 2019
